FAERS Safety Report 7044499-3 (Version None)
Quarter: 2010Q3

REPORT INFORMATION
  Report Type: 
  Country: None (occurrence: None)
  Receive Date: 20100928
  Receipt Date: 20100209
  Transmission Date: 20110219
  Serious: Yes (Hospitalization, Disabling)
  Sender: FDA-Public Use
  Company Number: WAES 1002USA01525

PATIENT
  Age: 36 Month
  Sex: Female

DRUGS (2)
  1. SINGULAIR [Suspect]
     Indication: ASTHMA
     Dosage: 4MG/DAILY/PO
     Route: 048
     Dates: start: 20100101
  2. ALBUTEROL [Concomitant]

REACTIONS (1)
  - HALLUCINATION [None]
